FAERS Safety Report 10947162 (Version 2)
Quarter: 2017Q1

REPORT INFORMATION
  Report Type: Spontaneous
  Country: US (occurrence: US)
  Receive Date: 20150323
  Receipt Date: 20170103
  Transmission Date: 20170428
  Serious: No
  Sender: FDA-Public Use
  Company Number: US-BAUSCH-SYM-2014-14936

PATIENT
  Age: 74 Year
  Sex: Male

DRUGS (3)
  1. XENAZINE [Suspect]
     Active Substance: TETRABENAZINE
     Route: 048
  2. XENAZINE [Suspect]
     Active Substance: TETRABENAZINE
     Indication: HUNTINGTON^S DISEASE
     Route: 048
     Dates: start: 20151027
  3. XENAZINE [Suspect]
     Active Substance: TETRABENAZINE
     Route: 048

REACTIONS (10)
  - Hypersomnia [Unknown]
  - Mood altered [Unknown]
  - Panic attack [Recovered/Resolved]
  - Confusional state [Recovered/Resolved]
  - Balance disorder [Recovered/Resolved]
  - Fall [Unknown]
  - Dyskinesia [Not Recovered/Not Resolved]
  - Depressed mood [Unknown]
  - Dizziness [Recovered/Resolved]
  - Condition aggravated [Recovered/Resolved]

NARRATIVE: CASE EVENT DATE: 20131228
